FAERS Safety Report 6052526-5 (Version None)
Quarter: 2009Q1

REPORT INFORMATION
  Report Type: 
  Country: None (occurrence: None)
  Receive Date: 20090121
  Receipt Date: 20090109
  Transmission Date: 20090719
  Serious: Yes (Death, Life-Threatening, Hospitalization)
  Sender: FDA-Public Use
  Company Number: CLOF-1000397

PATIENT
  Age: 24 Year
  Sex: Male

DRUGS (13)
  1. CLOLAR [Suspect]
     Indication: ACUTE MYELOID LEUKAEMIA
     Dosage: INTRAVENOUS
     Route: 042
     Dates: start: 20081101, end: 20081101
  2. VINORELBINE TARTRATE [Suspect]
     Indication: ACUTE MYELOID LEUKAEMIA
     Dates: start: 20081114, end: 20081114
  3. VINORELBINE TARTRATE [Suspect]
     Indication: ACUTE MYELOID LEUKAEMIA
     Dates: start: 20081121, end: 20081121
  4. VINORELBINE TARTRATE [Suspect]
     Indication: ACUTE MYELOID LEUKAEMIA
     Dates: start: 20081128, end: 20081128
  5. THIOTEPA [Suspect]
     Indication: ACUTE MYELOID LEUKAEMIA
     Dates: start: 20081116, end: 20081116
  6. TOPOTECAN (TOPOTECAN) [Suspect]
     Indication: ACUTE MYELOID LEUKAEMIA
     Dates: start: 20081114, end: 20081119
  7. DECADRON [Concomitant]
  8. RANITIDINE [Concomitant]
  9. G-CSF (GRANULOCYTE COLONY STIMULATING FACTOR) [Concomitant]
  10. VORICONAZOLE [Concomitant]
  11. BACTRIM [Concomitant]
  12. ACYCLOVIR [Concomitant]
  13. LEVOFLOXACIN [Concomitant]

REACTIONS (10)
  - ASCITES [None]
  - CARDIAC ARREST [None]
  - CENTRAL LINE INFECTION [None]
  - DRY MOUTH [None]
  - ENTERITIS [None]
  - ENTEROCOCCAL BACTERAEMIA [None]
  - MENTAL STATUS CHANGES [None]
  - MUCOSAL INFLAMMATION [None]
  - PANCYTOPENIA [None]
  - REFUSAL OF TREATMENT BY RELATIVE [None]
